FAERS Safety Report 4534755-2 (Version None)
Quarter: 2004Q4

REPORT INFORMATION
  Report Type: 
  Country: None (occurrence: None)
  Receive Date: 20041222
  Receipt Date: 20040129
  Transmission Date: 20050328
  Serious: No
  Sender: FDA-Public Use
  Company Number: US-BRISTOL-MYERS SQUIBB COMPANY-12491049

PATIENT
  Age: 86 Year
  Sex: Male

DRUGS (1)
  1. PRAVACHOL [Suspect]
     Route: 048

REACTIONS (3)
  - ABDOMINAL PAIN [None]
  - HEPATIC ENZYME INCREASED [None]
  - JAUNDICE [None]
